FAERS Safety Report 10602102 (Version 2)
Quarter: 2015Q2

REPORT INFORMATION
  Report Type: Spontaneous
  Country: DE (occurrence: DE)
  Receive Date: 20141124
  Receipt Date: 20150601
  Transmission Date: 20150821
  Serious: Yes (Other)
  Sender: FDA-Public Use
  Company Number: DE-CELGENE-DEU-2014113215

PATIENT
  Age: 75 Year
  Sex: Male

DRUGS (3)
  1. BONDRONATE [Concomitant]
     Route: 041
     Dates: start: 20130416, end: 20131007
  2. THALIDOMIDE [Suspect]
     Active Substance: THALIDOMIDE
     Indication: PLASMA CELL MYELOMA
     Dosage: 50 MILLIGRAM
     Route: 048
     Dates: start: 200510, end: 201410
  3. BONDRONATE [Concomitant]
     Indication: PLASMACYTOMA
     Route: 041
     Dates: start: 20050401, end: 20130219

REACTIONS (1)
  - Myelodysplastic syndrome [Unknown]

NARRATIVE: CASE EVENT DATE: 201410
